FAERS Safety Report 5850471-9 (Version None)
Quarter: 2008Q3

REPORT INFORMATION
  Report Type: 
  Country: None (occurrence: None)
  Receive Date: 20080818
  Receipt Date: 20080806
  Transmission Date: 20090109
  Serious: Yes (Hospitalization, Disabling)
  Sender: FDA-Public Use
  Company Number: 2008S1007732

PATIENT
  Sex: Female

DRUGS (4)
  1. PHOSPHOSODA FLAVOR NOT SPECIFIED [Suspect]
     Indication: COLONOSCOPY
     Dosage: ; X1; PO
     Route: 048
     Dates: start: 20050815, end: 20050815
  2. FLEET ENEMA (SODIUM PHOSPHATE) [Suspect]
     Indication: COLONOSCOPY
     Dosage: 133 ML; ; RTL
     Route: 054
     Dates: start: 20050816, end: 20050816
  3. ANGIOTENSIN II [Concomitant]
  4. DIURETICS [Concomitant]

REACTIONS (1)
  - RENAL FAILURE [None]
